FAERS Safety Report 7776319-3 (Version None)
Quarter: 2011Q3

REPORT INFORMATION
  Report Type: 
  Country: None (occurrence: None)
  Receive Date: 20110926
  Receipt Date: 20110912
  Transmission Date: 20111222
  Serious: Yes (Death, Hospitalization)
  Sender: FDA-Public Use
  Company Number: US-RANBAXY-2011US-48313

PATIENT
  Age: 15 Year
  Sex: Male

DRUGS (3)
  1. BUPRENORPHINE [Suspect]
     Indication: PRODUCT USED FOR UNKNOWN INDICATION
     Dosage: UNK,UNK
     Route: 048
  2. CODEINE/GUAIFENESIN [Suspect]
     Indication: PRODUCT USED FOR UNKNOWN INDICATION
     Dosage: UNK.UNK
     Route: 048
  3. ACETAMINOPHEN [Suspect]
     Indication: PRODUCT USED FOR UNKNOWN INDICATION
     Dosage: UNK, UNK
     Route: 048

REACTIONS (3)
  - COMPLETED SUICIDE [None]
  - ENCEPHALOPATHY [None]
  - BRAIN DEATH [None]
